FAERS Safety Report 13167222 (Version 1)
Quarter: 2017Q1

REPORT INFORMATION
  Report Type: Spontaneous
  Country: US (occurrence: US)
  Receive Date: 20170126
  Receipt Date: 20170126
  Transmission Date: 20170428
  Serious: No
  Sender: FDA-Public Use
  Company Number: None

PATIENT
  Age: 3 Year
  Sex: Male
  Weight: 11.25 kg

DRUGS (2)
  1. TAMIFLU [Suspect]
     Active Substance: OSELTAMIVIR PHOSPHATE
     Indication: INFLUENZA
     Dosage: ?          QUANTITY:8 ML;?
     Route: 048
     Dates: start: 20170120, end: 20170125
  2. AMOXICILIAN [Concomitant]

REACTIONS (3)
  - Confusional state [None]
  - Screaming [None]
  - Hallucination [None]

NARRATIVE: CASE EVENT DATE: 20170124
